FAERS Safety Report 8238406-5 (Version None)
Quarter: 2012Q1

REPORT INFORMATION
  Report Type: 
  Country: None (occurrence: None)
  Receive Date: 20120309
  Receipt Date: 20100510
  Transmission Date: 20120608
  Serious: Yes (Other)
  Sender: FDA-Public Use
  Company Number: PHHY2010US06281

PATIENT
  Age: 32 Year
  Sex: Female
  Weight: 108.8 kg

DRUGS (3)
  1. EXTAVIA [Suspect]
     Indication: MULTIPLE SCLEROSIS
     Dosage: 0.025MG, QOD, SUBCUTANEOUS
     Route: 058
     Dates: start: 20100129
  2. LORTAB (HYDROCODONE BITARTRATE, PACEATEMAOL) [Concomitant]
  3. TOPAMAX [Concomitant]

REACTIONS (7)
  - INJECTION SITE SWELLING [None]
  - PYREXIA [None]
  - INFLUENZA LIKE ILLNESS [None]
  - MIGRAINE [None]
  - INJECTION SITE DISCOLOURATION [None]
  - INJECTION SITE ERYTHEMA [None]
  - PAIN [None]
